FAERS Safety Report 18572339 (Version 1)
Quarter: 2020Q4

REPORT INFORMATION
  Report Type: Spontaneous
  Country: DE (occurrence: DE)
  Receive Date: 20201203
  Receipt Date: 20201203
  Transmission Date: 20210114
  Serious: Yes (Other)
  Sender: FDA-Public Use
  Company Number: DE-AMGEN-DEUSP2020193532

PATIENT
  Age: 149 Month
  Weight: 32 kg

DRUGS (3)
  1. EVOLOCUMAB [Suspect]
     Active Substance: EVOLOCUMAB
     Indication: TYPE IIA HYPERLIPIDAEMIA
     Dosage: UNK
     Route: 065
  2. EZETIMIBE. [Concomitant]
     Active Substance: EZETIMIBE
     Dosage: UNK UNK, 2 TIMES/WK
  3. ATORVASTATIN [Concomitant]
     Active Substance: ATORVASTATIN
     Dosage: UNK UNK, 2 TIMES/WK

REACTIONS (4)
  - Coronary artery disease [Unknown]
  - Arteriosclerosis [Unknown]
  - Drug ineffective [Unknown]
  - Off label use [Unknown]
